FAERS Safety Report 8399335-X (Version None)
Quarter: 2012Q2

REPORT INFORMATION
  Report Type: 
  Country: None (occurrence: None)
  Receive Date: 20120531
  Receipt Date: 20120529
  Transmission Date: 20120825
  Serious: Yes (Other)
  Sender: FDA-Public Use
  Company Number: US-BAYER-2012-053709

PATIENT
  Sex: Female

DRUGS (2)
  1. AVELOX [Suspect]
     Indication: UPPER RESPIRATORY TRACT INFECTION
  2. AVELOX [Suspect]
     Indication: SINUSITIS
     Dosage: UNK
     Dates: end: 20120510

REACTIONS (4)
  - THROAT TIGHTNESS [None]
  - CHEST DISCOMFORT [None]
  - PARAESTHESIA [None]
  - ABDOMINAL DISCOMFORT [None]
